FAERS Safety Report 10621721 (Version 1)
Quarter: 2014Q4

REPORT INFORMATION
  Report Type: Spontaneous
  Country: US (occurrence: None)
  Receive Date: 20141201
  Receipt Date: 20141201
  Transmission Date: 20150529
  Serious: Yes (Death)
  Sender: FDA-Public Use
  Company Number: None

PATIENT
  Sex: Female

DRUGS (2)
  1. AFINITOR [Suspect]
     Active Substance: EVEROLIMUS
     Indication: BREAST CANCER
     Dosage: BY MOUTH
     Dates: start: 20140329, end: 20141028
  2. AFINITOR [Suspect]
     Active Substance: EVEROLIMUS
     Indication: BONE CANCER
     Dosage: BY MOUTH
     Dates: start: 20140329, end: 20141028

REACTIONS (1)
  - Death [None]
